FAERS Safety Report 7501185-0 (Version None)
Quarter: 2011Q2

REPORT INFORMATION
  Report Type: 
  Country: None (occurrence: None)
  Receive Date: 20110524
  Receipt Date: 20100713
  Transmission Date: 20111010
  Serious: No
  Sender: FDA-Public Use
  Company Number: US-NOVEN-ALL1-2010-03833

PATIENT

DRUGS (4)
  1. SINGULAIR [Concomitant]
     Dosage: 5 MG, 1X/DAY:QD
     Route: 048
     Dates: start: 20100601
  2. DAYTRANA [Suspect]
     Dosage: 15 MG, 1X/DAY:QD
     Route: 062
     Dates: start: 20080101
  3. NASONEX [Concomitant]
     Dosage: UNK, 1X/DAY:QD (ONE SPRAY IN EACH NOSTRIL DAILY)
     Route: 045
     Dates: start: 20100601
  4. FLOVENT [Concomitant]
     Dosage: UNK, 1X/DAY:QD (2 PUFFS)
     Route: 055
     Dates: start: 20090101

REACTIONS (3)
  - PRODUCT QUALITY ISSUE [None]
  - NO ADVERSE EVENT [None]
  - WRONG TECHNIQUE IN DRUG USAGE PROCESS [None]
